FAERS Safety Report 18460544 (Version 1)
Quarter: 2020Q4

REPORT INFORMATION
  Report Type: Other
  Country: US (occurrence: US)
  Receive Date: 20201103
  Receipt Date: 20201103
  Transmission Date: 20210114
  Serious: Yes (Hospitalization, Other)
  Sender: FDA-Public Use
  Company Number: US-ROCHE-2703568

PATIENT
  Sex: Female

DRUGS (1)
  1. XELODA [Suspect]
     Active Substance: CAPECITABINE
     Indication: COLON CANCER
     Dosage: TAKE 3 TABLET(S) BY MOUTH TWICE A DAY FOR 2 WEEK(S) EVERY 28 DAY(S)
     Route: 048

REACTIONS (3)
  - Pyrexia [Unknown]
  - T-lymphocyte count abnormal [Unknown]
  - Kidney infection [Unknown]
